FAERS Safety Report 5028917-8 (Version None)
Quarter: 2006Q2

REPORT INFORMATION
  Report Type: 
  Country: None (occurrence: None)
  Receive Date: 20060619
  Receipt Date: 20060607
  Transmission Date: 20061013
  Serious: Yes (Disabling)
  Sender: FDA-Public Use
  Company Number: FR-GLAXOSMITHKLINE-B0426814A

PATIENT
  Age: 75 Year
  Sex: Male
  Weight: 70 kg

DRUGS (7)
  1. AVANDAMET [Suspect]
     Indication: DIABETES MELLITUS NON-INSULIN-DEPENDENT
     Route: 048
     Dates: start: 20060101
  2. PHYSIOTENS [Concomitant]
     Indication: DIABETES MELLITUS NON-INSULIN-DEPENDENT
     Route: 065
  3. TENORDATE [Concomitant]
     Route: 065
  4. AMARYL [Concomitant]
     Route: 065
  5. APROVEL [Concomitant]
     Route: 065
  6. ESIDRIX [Concomitant]
     Route: 065
  7. LASILIX 40 MG [Concomitant]
     Route: 065

REACTIONS (3)
  - ASTHENIA [None]
  - OEDEMA [None]
  - PLEURISY [None]
